FAERS Safety Report 20011596 (Version 1)
Quarter: 2021Q4

REPORT INFORMATION
  Report Type: Spontaneous
  Country: US (occurrence: US)
  Receive Date: 20211029
  Receipt Date: 20211029
  Transmission Date: 20220303
  Serious: Yes (Other)
  Sender: FDA-Public Use
  Company Number: US-AUROBINDO-AUR-APL-2021-044323

PATIENT
  Age: 55 Year
  Sex: Female

DRUGS (2)
  1. METHYLPREDNISOLONE [Suspect]
     Active Substance: METHYLPREDNISOLONE
     Indication: Transplant rejection
     Dosage: UNK
     Route: 065
  2. DEXTROSE [Concomitant]
     Active Substance: DEXTROSE
     Indication: Ketoacidosis
     Dosage: 100 GRAM (TOTAL OVER 18 HOURS)
     Route: 041

REACTIONS (1)
  - Ketoacidosis [Unknown]
